FAERS Safety Report 10141295 (Version 1)
Quarter: 2014Q2

REPORT INFORMATION
  Report Type: Spontaneous
  Country: US (occurrence: US)
  Receive Date: 20140429
  Receipt Date: 20140429
  Transmission Date: 20141212
  Serious: No
  Sender: FDA-Public Use
  Company Number: US-BAYER-2014-059618

PATIENT
  Age: 45 Year
  Sex: Female
  Weight: 99.77 kg

DRUGS (1)
  1. CLIMARA [Suspect]
     Indication: MENOPAUSE
     Dosage: 375 MCG/24HR, CONT
     Route: 062
     Dates: start: 20140410

REACTIONS (2)
  - Drug administered at inappropriate site [Recovered/Resolved]
  - Product adhesion issue [None]
